FAERS Safety Report 13706167 (Version 1)
Quarter: 2017Q2

REPORT INFORMATION
  Report Type: Spontaneous
  Country: JP (occurrence: JP)
  Receive Date: 20170630
  Receipt Date: 20170630
  Transmission Date: 20170830
  Serious: Yes (Other)
  Sender: FDA-Public Use
  Company Number: PHJP2017JP021196

PATIENT
  Age: 65 Year
  Sex: Female

DRUGS (1)
  1. LDK378 [Suspect]
     Active Substance: CERITINIB
     Indication: SQUAMOUS CELL CARCINOMA OF LUNG
     Dosage: 750 MG, QD
     Route: 048
     Dates: start: 201703

REACTIONS (3)
  - Malignant neoplasm progression [Unknown]
  - Cerebral infarction [Unknown]
  - Squamous cell carcinoma of lung [Unknown]
